FAERS Safety Report 18639890 (Version 1)
Quarter: 2020Q4

REPORT INFORMATION
  Report Type: Spontaneous
  Country: US (occurrence: US)
  Receive Date: 20201220
  Receipt Date: 20201220
  Transmission Date: 20210114
  Serious: No
  Sender: FDA-Public Use
  Company Number: US-PACIRA-201900389

PATIENT

DRUGS (2)
  1. EXPAREL [Suspect]
     Active Substance: BUPIVACAINE
     Indication: NERVE BLOCK
     Dosage: 10 CC ADMIXED WITH 20 CC OF 0.5% ROPIVACAINE
     Route: 065
     Dates: start: 20191111, end: 20191111
  2. ROPIVACAINE. [Suspect]
     Active Substance: ROPIVACAINE HYDROCHLORIDE
     Indication: NERVE BLOCK
     Dosage: 20 CC ADMIXED WITH 10 CC OF EXPAREL
     Route: 065
     Dates: start: 20191111, end: 20191111

REACTIONS (2)
  - No adverse event [Unknown]
  - Labelled drug-drug interaction medication error [Unknown]

NARRATIVE: CASE EVENT DATE: 20191111
